FAERS Safety Report 7451376-2 (Version None)
Quarter: 2011Q2

REPORT INFORMATION
  Report Type: 
  Country: None (occurrence: None)
  Receive Date: 20110422
  Receipt Date: 20110407
  Transmission Date: 20111010
  Serious: Yes (Hospitalization)
  Sender: FDA-Public Use
  Company Number: 026047

PATIENT
  Sex: Female

DRUGS (3)
  1. CIMZIA [Suspect]
     Indication: CROHN'S DISEASE
     Dosage: SUBCUTANEOUS, 400 MG 1X/4 WEEKS SUBCUTANEOUS, 400  MG, RELOADING DOSE  SUBCUTANEOUS
     Route: 058
     Dates: start: 20110217, end: 20110101
  2. CIMZIA [Suspect]
     Indication: CROHN'S DISEASE
     Dosage: SUBCUTANEOUS, 400 MG 1X/4 WEEKS SUBCUTANEOUS, 400  MG, RELOADING DOSE  SUBCUTANEOUS
     Route: 058
     Dates: start: 20110101
  3. CIMZIA [Suspect]
     Indication: CROHN'S DISEASE
     Dosage: SUBCUTANEOUS, 400 MG 1X/4 WEEKS SUBCUTANEOUS, 400  MG, RELOADING DOSE  SUBCUTANEOUS
     Route: 058
     Dates: start: 20101005

REACTIONS (8)
  - DEHYDRATION [None]
  - RASH [None]
  - NO THERAPEUTIC RESPONSE [None]
  - WEIGHT INCREASED [None]
  - CROHN'S DISEASE [None]
  - HYPOKALAEMIA [None]
  - PRURITUS [None]
  - CONDITION AGGRAVATED [None]
